FAERS Safety Report 4601087-3 (Version None)
Quarter: 2005Q1

REPORT INFORMATION
  Report Type: 
  Country: None (occurrence: None)
  Receive Date: 20050127
  Receipt Date: 20041112
  Transmission Date: 20050727
  Serious: No
  Sender: FDA-Public Use
  Company Number: USA041183995

PATIENT
  Age: 13 Year
  Sex: Male
  Weight: 52 kg

DRUGS (6)
  1. STRATTERA [Suspect]
     Indication: DISTURBANCE IN ATTENTION
     Dosage: 60 MG DAY
     Dates: start: 20041108
  2. STRATTERA [Suspect]
     Indication: INSOMNIA
     Dosage: 60 MG DAY
     Dates: start: 20041108
  3. STRATTERA [Suspect]
     Indication: PSYCHOMOTOR HYPERACTIVITY
     Dosage: 60 MG DAY
     Dates: start: 20041108
  4. PULMICORT [Concomitant]
  5. XOPENEX [Concomitant]
  6. SINGULAIR (MONTELUKAST) [Concomitant]

REACTIONS (6)
  - ABNORMAL BEHAVIOUR [None]
  - HEADACHE [None]
  - INSOMNIA [None]
  - SLEEP DISORDER [None]
  - SLEEP TALKING [None]
  - THINKING ABNORMAL [None]
